FAERS Safety Report 14765502 (Version 2)
Quarter: 2018Q2

REPORT INFORMATION
  Report Type: Other
  Country: US (occurrence: US)
  Receive Date: 20180416
  Receipt Date: 20180426
  Transmission Date: 20180711
  Serious: Yes (Hospitalization, Other)
  Sender: FDA-Public Use
  Company Number: US-ACORDA-ACO_148719_2018

PATIENT
  Age: 60 Year
  Sex: Male

DRUGS (2)
  1. VALIUM [Suspect]
     Active Substance: DIAZEPAM
     Indication: PRODUCT USED FOR UNKNOWN INDICATION
     Dosage: UNK
     Route: 065
  2. AMPYRA [Suspect]
     Active Substance: DALFAMPRIDINE
     Indication: MULTIPLE SCLEROSIS
     Dosage: 10 MG, UNK
     Route: 065

REACTIONS (4)
  - Seizure [Unknown]
  - Multiple sclerosis relapse [Unknown]
  - Respiration abnormal [Unknown]
  - Therapy cessation [Unknown]

NARRATIVE: CASE EVENT DATE: 20180402
